FAERS Safety Report 9256363 (Version 1)
Quarter: 2013Q2

REPORT INFORMATION
  Report Type: Spontaneous
  Country: US (occurrence: US)
  Receive Date: 20130425
  Receipt Date: 20130425
  Transmission Date: 20140414
  Serious: No
  Sender: FDA-Public Use
  Company Number: US-009507513-1304USA012763

PATIENT
  Age: 63 Year
  Sex: Male

DRUGS (3)
  1. VICTRELIS [Suspect]
     Indication: HEPATITIS C
     Dosage: 800 MG, TID
     Route: 048
     Dates: start: 2013
  2. PEGASYS [Suspect]
     Dosage: 180 MICROGRAM, ONCE EACH WEEK
  3. REBETOL [Suspect]
     Dosage: 600 MG, TWICE EACH DAY
     Route: 048

REACTIONS (4)
  - Medication error [Unknown]
  - Product taste abnormal [Unknown]
  - Product quality issue [Unknown]
  - No adverse event [Unknown]
